FAERS Safety Report 9432140 (Version 1)
Quarter: 2013Q3

REPORT INFORMATION
  Report Type: Spontaneous
  Country: US (occurrence: US)
  Receive Date: 20130731
  Receipt Date: 20130731
  Transmission Date: 20140515
  Serious: No
  Sender: FDA-Public Use
  Company Number: US-PFIZER INC-2013221532

PATIENT
  Age: 52 Year
  Sex: Male
  Weight: 83.9 kg

DRUGS (1)
  1. INLYTA [Suspect]
     Indication: RENAL CANCER
     Dosage: 6 MG (1-5MG AND 1-1MG TABLETS), 2X/DAY
     Route: 048
     Dates: start: 20120809, end: 20130504

REACTIONS (2)
  - Disease progression [Unknown]
  - Renal cancer [Unknown]
